FAERS Safety Report 9032619 (Version 1)
Quarter: 2013Q1

REPORT INFORMATION
  Report Type: Spontaneous
  Country: US (occurrence: None)
  Receive Date: 20130109
  Receipt Date: 20130109
  Transmission Date: 20140127
  Serious: Yes (Hospitalization)
  Sender: FDA-Public Use
  Company Number: FK201204206

PATIENT
  Age: 71 Year
  Sex: Male

DRUGS (12)
  1. HEPARIN (MANUFACTURER UNKOWN) (HEPARIN) (HEPARIN) [Suspect]
     Indication: PRODUCT USED FOR UNKNOWN INDICATION
  2. HEPARIN (MANUFACTURER UNKOWN) (HEPARIN) (HEPARIN) [Suspect]
  3. ERLOTINIB [Suspect]
     Indication: PANCREATIC CARCINOMA
     Dosage: 1 IN 1 D
     Route: 048
     Dates: start: 20120917
  4. BENADRYL (DIPHENDYDRAMINE) [Concomitant]
  5. COMPAZINE (PROCHLORPERAZINE) [Concomitant]
  6. POTASSIUM (POTASSIUM) [Concomitant]
  7. LOVENOX [Concomitant]
  8. OMEPRAZOLE (OMEPRAZOLE) [Concomitant]
  9. WARFARIN (WARFARIN) [Concomitant]
  10. ZOFRAN [Concomitant]
  11. ZOFRAN [Concomitant]
  12. ANTI-NEOPLASTIC AGENTS [Concomitant]

REACTIONS (8)
  - Cellulitis [None]
  - Heparin-induced thrombocytopenia [None]
  - Deep vein thrombosis [None]
  - Fall [None]
  - Head injury [None]
  - White blood cell count decreased [None]
  - International normalised ratio decreased [None]
  - Drug dose omission [None]
